FAERS Safety Report 4519453-3 (Version None)
Quarter: 2004Q4

REPORT INFORMATION
  Report Type: 
  Country: None (occurrence: None)
  Receive Date: 20041202
  Receipt Date: 20041122
  Transmission Date: 20050328
  Serious: Yes (Hospitalization)
  Sender: FDA-Public Use
  Company Number: A044-002-005325

PATIENT
  Age: 79 Year
  Sex: Female

DRUGS (7)
  1. ARICEPT [Suspect]
     Indication: SENILE DEMENTIA
     Dosage: 1 IN 1 D, ORAL
     Route: 048
     Dates: end: 20040525
  2. AMITRIPTYLINE HYDROCHLORIDE [Suspect]
     Indication: DEPRESSION
     Dosage: ORAL
     Route: 048
     Dates: end: 20040525
  3. XANAX [Suspect]
     Dosage: ORAL
     Route: 048
     Dates: end: 20040610
  4. ZYPREXA [Suspect]
     Dosage: ORAL
     Route: 048
     Dates: end: 20040525
  5. PAROXETINE HCL [Suspect]
     Indication: DEPRESSION
     Dosage: ORAL
     Route: 048
     Dates: end: 20040610
  6. ZESTORETIC (PRINIZDE) [Concomitant]
  7. INIPOMP (PANTOPRAZOLE) [Concomitant]

REACTIONS (2)
  - CATATONIA [None]
  - DISTURBANCE IN ATTENTION [None]
